FAERS Safety Report 6427281-7 (Version None)
Quarter: 2009Q4

REPORT INFORMATION
  Report Type: 
  Country: None (occurrence: None)
  Receive Date: 20091104
  Receipt Date: 20091028
  Transmission Date: 20100525
  Serious: Yes (Hospitalization)
  Sender: FDA-Public Use
  Company Number: B0595046A

PATIENT
  Age: 65 Year
  Sex: Female
  Weight: 60 kg

DRUGS (2)
  1. ACYCLOVIR [Suspect]
     Dosage: 900MG THREE TIMES PER DAY
     Route: 042
     Dates: start: 20090904
  2. SODIUM CHLORIDE 0.9% [Concomitant]
     Route: 042

REACTIONS (2)
  - HYPOKALAEMIA [None]
  - RENAL TUBULAR DISORDER [None]
